FAERS Safety Report 10731369 (Version 3)
Quarter: 2015Q1

REPORT INFORMATION
  Report Type: Report from Study
  Country: JP (occurrence: JP)
  Receive Date: 20150122
  Receipt Date: 20150305
  Transmission Date: 20150721
  Serious: Yes (Hospitalization)
  Sender: FDA-Public Use
  Company Number: JP-GLAXOSMITHKLINE-JP2015JPN004215

PATIENT
  Age: 71 Year
  Sex: Female

DRUGS (15)
  1. XELODA [Suspect]
     Active Substance: CAPECITABINE
     Indication: BREAST CANCER
     Dosage: 600 MG, BID
     Route: 048
     Dates: start: 20130729
  2. METHYCOBAL [Concomitant]
     Active Substance: METHYLCOBALAMIN
     Dosage: 500 ?G, TID
     Route: 048
  3. XELODA [Suspect]
     Active Substance: CAPECITABINE
     Dosage: 600 MG, BID
     Route: 048
     Dates: start: 20130729
  4. DENOTAS [Concomitant]
     Active Substance: CALCIUM CARBONATE\CHOLECALCIFEROL\MAGNESIUM CARBONATE
     Dosage: 2 TABLETS, QD
     Route: 048
  5. LYRICA [Concomitant]
     Active Substance: PREGABALIN
     Dosage: 25 MG, QD
     Route: 048
  6. PL (ACETAMINOPHEN + CAFFEINE + METHYLENEDISALICYLIC ACID + PROMETHAZIN [Concomitant]
     Dosage: 1 G, TID
     Route: 048
  7. TSUMURA GOSHAJINKIGAN [Concomitant]
     Active Substance: HERBALS
     Dosage: 2.5 G, TID
     Route: 048
  8. FERRUM [Concomitant]
     Active Substance: FERROUS FUMARATE
     Dosage: 100 MG, QD
     Route: 048
  9. RANMARK [Concomitant]
     Active Substance: DENOSUMAB
  10. VOLTAREN [Concomitant]
     Active Substance: DICLOFENAC SODIUM
     Dosage: 25 MG, TID
     Route: 048
  11. PASTARON [Concomitant]
     Active Substance: UREA
     Dosage: PROPER DOSE, ABOUT 5 TIMES PER DAY
     Route: 061
  12. REBAMIPIDE [Concomitant]
     Active Substance: REBAMIPIDE
     Dosage: 100 MG, TID
     Route: 048
  13. TYKERB [Suspect]
     Active Substance: LAPATINIB DITOSYLATE
     Indication: BREAST CANCER
     Dosage: 1000 MG, QD
     Route: 048
     Dates: start: 20130729
  14. ADEROXIN [Concomitant]
     Dosage: 0.3 G, BID
     Route: 048
  15. GASTER [Concomitant]
     Active Substance: FAMOTIDINE
     Dosage: 10 MG, BID

REACTIONS (1)
  - Dehydration [Recovering/Resolving]

NARRATIVE: CASE EVENT DATE: 20150108
